FAERS Safety Report 6167194-1 (Version None)
Quarter: 2009Q2

REPORT INFORMATION
  Report Type: 
  Country: None (occurrence: None)
  Receive Date: 20090424
  Receipt Date: 20090420
  Transmission Date: 20091009
  Serious: Yes (Other)
  Sender: FDA-Public Use
  Company Number: US-GILEAD-2009-0021580

PATIENT
  Sex: Male

DRUGS (2)
  1. TRUVADA [Suspect]
  2. FOSAMPRENAVIR [Suspect]
     Indication: HIV INFECTION

REACTIONS (1)
  - ANGIOEDEMA [None]
